FAERS Safety Report 17187569 (Version 2)
Quarter: 2020Q1

REPORT INFORMATION
  Report Type: Spontaneous
  Country: US (occurrence: US)
  Receive Date: 20191220
  Receipt Date: 20200109
  Transmission Date: 20200409
  Serious: No
  Sender: FDA-Public Use
  Company Number: NVSC2019US027001

PATIENT
  Sex: Female

DRUGS (1)
  1. COSENTYX [Suspect]
     Active Substance: SECUKINUMAB
     Indication: PSORIASIS
     Dosage: 150 MG, QMO
     Route: 065

REACTIONS (5)
  - Pain [Unknown]
  - Muscle spasms [Unknown]
  - Nausea [Unknown]
  - Psoriasis [Unknown]
  - Arthritis [Unknown]
